FAERS Safety Report 23939207 (Version 1)
Quarter: 2024Q2

REPORT INFORMATION
  Report Type: Report from Study
  Country: US (occurrence: US)
  Receive Date: 20240604
  Receipt Date: 20240604
  Transmission Date: 20240715
  Serious: Yes (Hospitalization)
  Sender: FDA-Public Use
  Company Number: US-ABBVIE-5782972

PATIENT
  Sex: Male

DRUGS (1)
  1. HUMIRA [Suspect]
     Active Substance: ADALIMUMAB
     Indication: Product used for unknown indication
     Dosage: FORM STRENGTH: 40 MILLIGRAM?CITRATE FREE
     Route: 058

REACTIONS (4)
  - Decreased appetite [Recovering/Resolving]
  - Vomiting [Recovering/Resolving]
  - Weight decreased [Recovering/Resolving]
  - Gastrointestinal viral infection [Unknown]

NARRATIVE: CASE EVENT DATE: 20240101
